FAERS Safety Report 6645384-9 (Version None)
Quarter: 2010Q1

REPORT INFORMATION
  Report Type: 
  Country: None (occurrence: None)
  Receive Date: 20100322
  Receipt Date: 20100319
  Transmission Date: 20100710
  Serious: Yes (Hospitalization, Disabling)
  Sender: FDA-Public Use
  Company Number: US-MERCK-1003USA02180

PATIENT
  Age: 72 Year
  Sex: Female

DRUGS (10)
  1. FOSAMAX [Suspect]
     Indication: OSTEOPOROSIS
     Route: 048
  2. HYDROCHLOROTHIAZIDE [Concomitant]
     Route: 048
  3. SYNTHROID [Concomitant]
     Route: 065
  4. ZESTRIL [Concomitant]
     Route: 065
  5. VITAMINS (UNSPECIFIED) [Concomitant]
     Route: 065
  6. PREDNISONE [Concomitant]
     Route: 065
  7. COLACE [Concomitant]
     Route: 065
  8. FLEXERIL [Concomitant]
     Route: 048
  9. LYRICA [Concomitant]
     Route: 065
  10. DURAGESIC-100 [Concomitant]
     Route: 065

REACTIONS (2)
  - HIP FRACTURE [None]
  - LOWER LIMB FRACTURE [None]
